FAERS Safety Report 4747155-7 (Version None)
Quarter: 2005Q3

REPORT INFORMATION
  Report Type: 
  Country: None (occurrence: None)
  Receive Date: 20050815
  Receipt Date: 20050121
  Transmission Date: 20060218
  Serious: Yes (Hospitalization)
  Sender: FDA-Public Use
  Company Number: MEDI-0002785

PATIENT
  Age: 3 Month
  Sex: Male
  Weight: 5.8968 kg

DRUGS (3)
  1. SYNAGIS [Suspect]
     Indication: ANTIVIRAL PROPHYLAXIS
     Dosage: 65 MG, 1 IN 30 D, INTRAMUSCULAR;  49 MG, 1 IN 30 D, INTRAMUSCULAR
     Route: 030
     Dates: start: 20041118, end: 20041220
  2. SYNAGIS [Suspect]
     Indication: ANTIVIRAL PROPHYLAXIS
     Dosage: 65 MG, 1 IN 30 D, INTRAMUSCULAR;  49 MG, 1 IN 30 D, INTRAMUSCULAR
     Route: 030
     Dates: start: 20041118
  3. ZANTAC [Concomitant]

REACTIONS (4)
  - COUGH [None]
  - NASOPHARYNGITIS [None]
  - RESPIRATORY SYNCYTIAL VIRUS INFECTION [None]
  - WHEEZING [None]
